FAERS Safety Report 9357353 (Version 1)
Quarter: 2013Q2

REPORT INFORMATION
  Report Type: Spontaneous
  Country: DE (occurrence: DE)
  Receive Date: 20130620
  Receipt Date: 20130620
  Transmission Date: 20140414
  Serious: Yes (Other)
  Sender: FDA-Public Use
  Company Number: DE-ROCHE-1231225

PATIENT
  Age: 68 Year
  Sex: Female
  Weight: 74.2 kg

DRUGS (2)
  1. AVASTIN [Suspect]
     Indication: BREAST CANCER METASTATIC
     Route: 042
     Dates: start: 20120912
  2. DEXAMETHASON [Concomitant]
     Route: 042
     Dates: start: 20120910

REACTIONS (2)
  - Deafness neurosensory [Unknown]
  - Tinnitus [Unknown]
